FAERS Safety Report 15907694 (Version 3)
Quarter: 2022Q3

REPORT INFORMATION
  Report Type: Report from Study
  Country: US (occurrence: US)
  Receive Date: 20190204
  Receipt Date: 20220926
  Transmission Date: 20221027
  Serious: Yes (Hospitalization, Other)
  Sender: FDA-Public Use
  Company Number: US-GILEAD-2019-0388194

PATIENT
  Age: 48 Year
  Sex: Male

DRUGS (1)
  1. AXICABTAGENE CILOLEUCEL [Suspect]
     Active Substance: AXICABTAGENE CILOLEUCEL
     Indication: Non-Hodgkin^s lymphoma
     Route: 042

REACTIONS (10)
  - Pericardial effusion [Recovered/Resolved]
  - Superior vena cava syndrome [Recovered/Resolved]
  - Vena cava embolism [Not Recovered/Not Resolved]
  - Pleural effusion [Recovering/Resolving]
  - Neutropenia [Recovered/Resolved]
  - Swelling face [Not Recovered/Not Resolved]
  - Headache [Unknown]
  - Pyrexia [Unknown]
  - Aphonia [Unknown]
  - Laryngitis [Unknown]

NARRATIVE: CASE EVENT DATE: 20180507
